FAERS Safety Report 4370695-X (Version None)
Quarter: 2004Q2

REPORT INFORMATION
  Report Type: 
  Country: None (occurrence: None)
  Receive Date: 20040604
  Receipt Date: 20040430
  Transmission Date: 20050107
  Serious: Yes (Hospitalization)
  Sender: FDA-Public Use
  Company Number: PHNU2004DE01701

PATIENT
  Age: 68 Year
  Sex: Male

DRUGS (14)
  1. ZADITEN [Suspect]
     Indication: ASTHMA
     Dosage: 1 DF, BID
     Route: 048
     Dates: start: 19840101
  2. ZADITEN [Suspect]
     Dosage: 1 DF, QD
     Route: 048
  3. VERAPAMIL [Suspect]
     Dosage: 80 UNK, UNK
  4. EUPHYLLIN [Suspect]
  5. AERODUR [Concomitant]
  6. BEROTEC [Suspect]
     Dosage: UNK, PRN
  7. PULMIDUR FORTE [Concomitant]
     Dosage: 150 MG, QD
  8. PULMIDUR [Concomitant]
  9. SANASTHMAX [Concomitant]
     Dosage: 4-5DF/DAY
  10. SANASTHMYL [Concomitant]
     Dosage: 3-4DF/DAY
  11. MAGIUM E [Concomitant]
     Dosage: 1 DF, QD
  12. MAGNESIUM [Concomitant]
     Dosage: 6DF/DAY
  13. ASPIRIN [Concomitant]
     Dosage: 100 MG, QD
  14. AERIUS [Concomitant]
     Dosage: 1 DF, QD

REACTIONS (25)
  - ANGINA PECTORIS [None]
  - ARRHYTHMIA [None]
  - ASTHMA [None]
  - BLADDER DISCOMFORT [None]
  - BLADDER DISORDER [None]
  - BLADDER PAIN [None]
  - CELLULITIS [None]
  - CYSTITIS [None]
  - DISEASE RECURRENCE [None]
  - DRUG INTERACTION [None]
  - DRUG WITHDRAWAL SYNDROME [None]
  - DYSURIA [None]
  - INGUINAL HERNIA [None]
  - MENTAL DISORDER [None]
  - NOCTURIA [None]
  - PARAESTHESIA [None]
  - PERIPHERAL COLDNESS [None]
  - RENAL PAIN [None]
  - RESPIRATORY DISORDER [None]
  - TESTICULAR ATROPHY [None]
  - TRANSURETHRAL PROSTATECTOMY [None]
  - URETHRAL DISORDER [None]
  - URETHRITIS [None]
  - URINARY TRACT INFECTION [None]
  - WITHDRAWAL ARRHYTHMIA [None]
